FAERS Safety Report 7714235-3 (Version None)
Quarter: 2011Q3

REPORT INFORMATION
  Report Type: 
  Country: None (occurrence: None)
  Receive Date: 20110829
  Receipt Date: 20110817
  Transmission Date: 20111222
  Serious: No
  Sender: FDA-Public Use
  Company Number: US-BIOGENIDEC-2011BI031674

PATIENT
  Sex: Male

DRUGS (4)
  1. AVONEX [Concomitant]
     Route: 030
     Dates: start: 20110808
  2. AVONEX [Concomitant]
     Indication: MULTIPLE SCLEROSIS
     Route: 030
  3. TYSABRI [Suspect]
     Indication: MULTIPLE SCLEROSIS
     Route: 042
     Dates: start: 20110609
  4. TYSABRI [Suspect]
     Route: 042
     Dates: start: 20041223

REACTIONS (4)
  - FEELING HOT [None]
  - HYPERSENSITIVITY [None]
  - ADVERSE DRUG REACTION [None]
  - BACK PAIN [None]
